FAERS Safety Report 8282324-3 (Version None)
Quarter: 2012Q2

REPORT INFORMATION
  Report Type: 
  Country: None (occurrence: None)
  Receive Date: 20120413
  Receipt Date: 20120413
  Transmission Date: 20120825
  Serious: No
  Sender: FDA-Public Use
  Company Number: None

PATIENT
  Age: 33 Year
  Sex: Female
  Weight: 56.699 kg

DRUGS (2)
  1. KENALOG [Suspect]
     Indication: BURSITIS
     Route: 014
     Dates: start: 20120217, end: 20120217
  2. KENALOG [Suspect]
     Indication: TENDONITIS
     Route: 014
     Dates: start: 20120217, end: 20120217

REACTIONS (16)
  - SENSATION OF HEAVINESS [None]
  - HYPERHIDROSIS [None]
  - ARTHRALGIA [None]
  - THIRST [None]
  - SKIN DISCOLOURATION [None]
  - DIZZINESS [None]
  - PYREXIA [None]
  - VOMITING [None]
  - FLUSHING [None]
  - POLLAKIURIA [None]
  - TINNITUS [None]
  - DYSSTASIA [None]
  - BACK PAIN [None]
  - PAIN IN EXTREMITY [None]
  - OEDEMA PERIPHERAL [None]
  - MYALGIA [None]
